FAERS Safety Report 23222983 (Version 2)
Quarter: 2024Q1

REPORT INFORMATION
  Report Type: Spontaneous
  Country: US (occurrence: US)
  Receive Date: 20231123
  Receipt Date: 20240221
  Transmission Date: 20240410
  Serious: Yes (Death, Hospitalization)
  Sender: FDA-Public Use
  Company Number: US-TEVA-2023-US-2946887

PATIENT
  Age: 4 Month
  Sex: Female

DRUGS (7)
  1. EPINEPHRINE [Suspect]
     Active Substance: EPINEPHRINE
     Indication: Cardiac arrest
     Dosage: DOSAGE TEXT: DRIP , ADDITIONAL INFO: ROUTE: {INTRAOSSEOUS}
     Route: 065
  2. EPINEPHRINE [Suspect]
     Active Substance: EPINEPHRINE
     Indication: Hypotension
  3. CALCIUM GLUCONATE [Suspect]
     Active Substance: CALCIUM GLUCONATE
     Indication: Cardiac arrest
     Route: 065
  4. SODIUM CHLORIDE [Suspect]
     Active Substance: SODIUM CHLORIDE
     Indication: Cardiac arrest
     Dosage: DOSAGE TEXT: TWO BOLUSES
     Route: 065
  5. HYDROCORTISONE [Suspect]
     Active Substance: HYDROCORTISONE
     Indication: Cardiac arrest
     Route: 065
  6. NALOXONE [Suspect]
     Active Substance: NALOXONE
     Indication: Cardiac arrest
     Route: 065
  7. CEFTRIAXONE [Suspect]
     Active Substance: CEFTRIAXONE\CEFTRIAXONE SODIUM
     Indication: Cardiac arrest
     Route: 065

REACTIONS (1)
  - Drug ineffective [Fatal]
